FAERS Safety Report 5588963-2 (Version None)
Quarter: 2007Q4

REPORT INFORMATION
  Report Type: 
  Country: None (occurrence: None)
  Receive Date: 20071212
  Receipt Date: 20070420
  Transmission Date: 20080405
  Serious: Yes (Other)
  Sender: FDA-Public Use
  Company Number: USA-2007-0027134

PATIENT
  Sex: Male

DRUGS (3)
  1. OXYCODONE HYDROCHLORIDE )SIMILAR TO NDA 20-553) (OXYCODONE HYDROCHLORI [Suspect]
     Indication: DRUG ABUSER
  2. HEROIN (DIAMORPHINE) [Suspect]
     Indication: DRUG ABUSER
  3. OPIOIDS [Suspect]
     Indication: DRUG ABUSER

REACTIONS (1)
  - SUBSTANCE ABUSE [None]
